FAERS Safety Report 7056374-9 (Version None)
Quarter: 2010Q4

REPORT INFORMATION
  Report Type: 
  Country: None (occurrence: None)
  Receive Date: 20101021
  Receipt Date: 20100921
  Transmission Date: 20110411
  Serious: Yes (Other)
  Sender: FDA-Public Use
  Company Number: PHHY2010BR66331

PATIENT
  Age: 60 Year
  Sex: Female
  Weight: 67 kg

DRUGS (5)
  1. EXFORGE HCT [Suspect]
     Dosage: 320/10/25 MG PER DAY
  2. EUTHYROX [Concomitant]
     Dosage: 125 MCG/DAY
  3. METOPROLOL SUCCINATE [Concomitant]
     Dosage: 100 MG/DAY
  4. SIMVASTATIN [Concomitant]
     Dosage: 80 MG/DAY
  5. ASPIRIN [Concomitant]
     Dosage: 81 MG/DAY

REACTIONS (15)
  - ANGINA UNSTABLE [None]
  - ATRIAL FIBRILLATION [None]
  - BLOOD PRESSURE INCREASED [None]
  - DIZZINESS [None]
  - DYSPNOEA EXERTIONAL [None]
  - HEADACHE [None]
  - HYPERTENSION [None]
  - HYPOPERFUSION [None]
  - METABOLIC SYNDROME [None]
  - NAUSEA [None]
  - OEDEMA PERIPHERAL [None]
  - ORTHOPNOEA [None]
  - PALPITATIONS [None]
  - RENAL IMPAIRMENT [None]
  - VOMITING [None]
